FAERS Safety Report 12634909 (Version 1)
Quarter: 2016Q3

REPORT INFORMATION
  Report Type: Other
  Country: GB (occurrence: ES)
  Receive Date: 20160808
  Receipt Date: 20160808
  Transmission Date: 20161109
  Serious: Yes (Disabling, Other)
  Sender: FDA-Public Use
  Company Number: ES-CLARIS PHARMASERVICES-1055966

PATIENT
  Age: 48 Year
  Sex: Male

DRUGS (3)
  1. AMOXICILLIN. [Concomitant]
     Active Substance: AMOXICILLIN
  2. METRONIDAZOLE. [Suspect]
     Active Substance: METRONIDAZOLE
     Indication: HELICOBACTER INFECTION
  3. OMEPRAZOLE. [Concomitant]
     Active Substance: OMEPRAZOLE

REACTIONS (5)
  - Musculoskeletal stiffness [Recovering/Resolving]
  - Pain [None]
  - Dystonia [Recovering/Resolving]
  - Mobility decreased [Recovering/Resolving]
  - Pain [Recovering/Resolving]
